FAERS Safety Report 21863609 (Version 2)
Quarter: 2024Q4

REPORT INFORMATION
  Report Type: Spontaneous
  Country: US (occurrence: US)
  Receive Date: 20230116
  Receipt Date: 20241009
  Transmission Date: 20250115
  Serious: No
  Sender: NOVARTIS
  Company Number: US-002147023-NVSC2023US008785

PATIENT
  Sex: Male
  Weight: 77.7 kg

DRUGS (1)
  1. PLUVICTO [Suspect]
     Active Substance: LUTETIUM LU-177 VIPIVOTIDE TETRAXETAN
     Indication: Hormone-refractory prostate cancer
     Dosage: 200 MCI  (EVERY 6 WEEK)
     Route: 042
     Dates: start: 20221013, end: 20230105

REACTIONS (3)
  - Ill-defined disorder [Unknown]
  - Disease progression [Unknown]
  - Prostatic specific antigen increased [Unknown]
